FAERS Safety Report 4874061-X (Version None)
Quarter: 2006Q1

REPORT INFORMATION
  Report Type: 
  Country: None (occurrence: None)
  Receive Date: 20060106
  Receipt Date: 20051230
  Transmission Date: 20060701
  Serious: Yes (Other)
  Sender: FDA-Public Use
  Company Number: PHNU2005DE04292

PATIENT
  Age: 9 Year
  Sex: Female

DRUGS (1)
  1. RITALIN [Suspect]
     Dosage: 20 MG/DAY
     Route: 048
     Dates: start: 20050101

REACTIONS (1)
  - VAGINAL HAEMORRHAGE [None]
